FAERS Safety Report 17985472 (Version 1)
Quarter: 2020Q3

REPORT INFORMATION
  Report Type: Spontaneous
  Country: US (occurrence: US)
  Receive Date: 20200706
  Receipt Date: 20200706
  Transmission Date: 20201103
  Serious: Yes (Other)
  Sender: FDA-Public Use
  Company Number: US-SHIRE-US202021134

PATIENT
  Sex: Male

DRUGS (4)
  1. 476 (MESALAZINE/MESALAMINE) [Suspect]
     Active Substance: MESALAMINE
     Indication: COLITIS ULCERATIVE
     Dosage: 4.8 GRAM (4 PILLS ONCE A DAY)
     Route: 042
     Dates: start: 20180601
  2. PREDNISONE. [Suspect]
     Active Substance: PREDNISONE
     Indication: COLITIS ULCERATIVE
     Dosage: UNK (EVERY 4 WEEKS)
     Route: 042
     Dates: start: 20180601
  3. INFLIXIMAB [Suspect]
     Active Substance: INFLIXIMAB
     Indication: PRODUCT USED FOR UNKNOWN INDICATION
     Route: 065
  4. ENTYVIO [Suspect]
     Active Substance: VEDOLIZUMAB
     Indication: COLITIS ULCERATIVE
     Dosage: UNK (EVERY 4 WEEKS)
     Route: 042
     Dates: start: 20180601

REACTIONS (4)
  - Atypical pneumonia [Unknown]
  - Immune system disorder [Unknown]
  - Fatigue [Unknown]
  - Staphylococcal infection [Unknown]
